FAERS Safety Report 16127075 (Version 1)
Quarter: 2019Q2

REPORT INFORMATION
  Report Type: Spontaneous
  Country: US (occurrence: US)
  Receive Date: 20190327
  Receipt Date: 20190327
  Transmission Date: 20190711
  Serious: Yes (Other)
  Sender: FDA-Public Use
  Company Number: None

PATIENT
  Age: 55 Year
  Sex: Male
  Weight: 69.75 kg

DRUGS (1)
  1. ATORVASTATIN 40 MG. TAB.GENERIC FOR LIPITOR [Suspect]
     Active Substance: ATORVASTATIN
     Indication: BLOOD CHOLESTEROL
     Dosage: ?          QUANTITY:1 TABLET(S);?
     Route: 048
     Dates: start: 20190213, end: 20190311

REACTIONS (12)
  - Pruritus [None]
  - Headache [None]
  - Fatigue [None]
  - Balance disorder [None]
  - Coordination abnormal [None]
  - Gait disturbance [None]
  - Dizziness [None]
  - Visual impairment [None]
  - Neck pain [None]
  - Depression [None]
  - Arthralgia [None]
  - Product substitution issue [None]

NARRATIVE: CASE EVENT DATE: 20190213
